FAERS Safety Report 7860037-7 (Version None)
Quarter: 2011Q4

REPORT INFORMATION
  Report Type: 
  Country: None (occurrence: None)
  Receive Date: 20111025
  Receipt Date: 20111013
  Transmission Date: 20120403
  Serious: Yes (Hospitalization)
  Sender: FDA-Public Use
  Company Number: 11-001120

PATIENT
  Sex: Female

DRUGS (1)
  1. LOESTRIN 24 FE [Suspect]
     Dosage: 20/1000 UG, QD, ORAL
     Route: 048
     Dates: start: 20100101, end: 20111001

REACTIONS (4)
  - CROHN'S DISEASE [None]
  - MENSTRUATION DELAYED [None]
  - CONDITION AGGRAVATED [None]
  - METRORRHAGIA [None]
